FAERS Safety Report 25114640 (Version 3)
Quarter: 2025Q2

REPORT INFORMATION
  Report Type: Spontaneous
  Country: PA (occurrence: PA)
  Receive Date: 20250324
  Receipt Date: 20250630
  Transmission Date: 20250716
  Serious: Yes (Other)
  Sender: SANDOZ
  Company Number: PA-002147023-NVSC2023PA077124

PATIENT
  Sex: Female

DRUGS (3)
  1. ANASTROZOLE [Suspect]
     Active Substance: ANASTROZOLE
     Indication: Product used for unknown indication
     Route: 065
  2. KISQALI [Suspect]
     Active Substance: RIBOCICLIB SUCCINATE
     Indication: Breast cancer metastatic
     Dosage: 600 MG, QD (ONCE A DAY) (THREE KISQALI TABLETS)
     Route: 048
     Dates: start: 20230217
  3. KISQALI [Suspect]
     Active Substance: RIBOCICLIB SUCCINATE
     Dosage: 600 MG, QD
     Route: 048
     Dates: start: 2023, end: 20250512

REACTIONS (4)
  - Metastases to lung [Recovering/Resolving]
  - Metastases to liver [Recovering/Resolving]
  - Metastases to bone [Recovering/Resolving]
  - Tumour marker increased [Unknown]
